FAERS Safety Report 4372725-8 (Version None)
Quarter: 2004Q2

REPORT INFORMATION
  Report Type: 
  Country: None (occurrence: None)
  Receive Date: 20040603
  Receipt Date: 20040518
  Transmission Date: 20050107
  Serious: No
  Sender: FDA-Public Use
  Company Number: A01200402330

PATIENT
  Age: 70 Year

DRUGS (1)
  1. PLAVIX [Suspect]
     Indication: CEREBROVASCULAR ACCIDENT
     Dosage: 75 MG QD
     Route: 048
     Dates: start: 20040301, end: 20040301

REACTIONS (1)
  - EXTRAPYRAMIDAL DISORDER [None]
